FAERS Safety Report 7150765-3 (Version None)
Quarter: 2010Q4

REPORT INFORMATION
  Report Type: 
  Country: None (occurrence: None)
  Receive Date: 20101210
  Receipt Date: 20101129
  Transmission Date: 20110411
  Serious: Yes (Hospitalization, Other)
  Sender: FDA-Public Use
  Company Number: US-ROCHE-694390

PATIENT
  Sex: Male
  Weight: 77.1 kg

DRUGS (3)
  1. ACCUTANE [Suspect]
     Indication: ACNE
     Route: 065
     Dates: start: 19920817, end: 19921101
  2. ACCUTANE [Suspect]
     Route: 065
     Dates: start: 19960103
  3. ACCUTANE [Suspect]
     Route: 065
     Dates: start: 19990301, end: 19990501

REACTIONS (8)
  - ALANINE AMINOTRANSFERASE INCREASED [None]
  - ASPARTATE AMINOTRANSFERASE INCREASED [None]
  - COLONIC FISTULA [None]
  - CROHN'S DISEASE [None]
  - DEPRESSION [None]
  - INFLAMMATORY BOWEL DISEASE [None]
  - SUICIDAL IDEATION [None]
  - SUICIDE ATTEMPT [None]
